FAERS Safety Report 8161446-1 (Version None)
Quarter: 2012Q1

REPORT INFORMATION
  Report Type: 
  Country: None (occurrence: None)
  Receive Date: 20120222
  Receipt Date: 20120222
  Transmission Date: 20120608
  Serious: Yes (Other)
  Sender: FDA-Public Use
  Company Number: None

PATIENT
  Sex: Female
  Weight: 91.08 kg

DRUGS (1)
  1. ANASTROZOLE [Suspect]
     Indication: MALIGNANT NIPPLE NEOPLASM
     Dosage: ANASTROZOLE 1MG 1 TAB DAILY PO
     Route: 048
     Dates: start: 20120131, end: 20120214

REACTIONS (3)
  - SWOLLEN TONGUE [None]
  - LOCAL SWELLING [None]
  - JOINT SWELLING [None]
